FAERS Safety Report 5010619-5 (Version None)
Quarter: 2006Q2

REPORT INFORMATION
  Report Type: 
  Country: None (occurrence: None)
  Receive Date: 20060525
  Receipt Date: 20060123
  Transmission Date: 20061013
  Serious: Yes (Hospitalization)
  Sender: FDA-Public Use
  Company Number: FR-BRISTOL-MYERS SQUIBB COMPANY-13256060

PATIENT
  Age: 55 Year
  Sex: Male
  Weight: 73 kg

DRUGS (10)
  1. ZERIT [Suspect]
     Indication: HIV INFECTION
     Route: 048
     Dates: start: 19991015, end: 20051210
  2. EPIVIR [Suspect]
     Indication: HIV INFECTION
     Dates: start: 19991015, end: 20051210
  3. VIRACEPT [Suspect]
     Indication: HIV INFECTION
     Dates: start: 19991015, end: 20000522
  4. KALETRA [Suspect]
     Indication: HIV INFECTION
     Dates: start: 20000522, end: 20051210
  5. DEPAKENE [Concomitant]
  6. NEURONTIN [Concomitant]
  7. NEXIUM [Concomitant]
  8. LEXOMIL [Concomitant]
  9. LOXEN LP [Concomitant]
  10. URBANYL [Concomitant]

REACTIONS (1)
  - PANCREATITIS HAEMORRHAGIC [None]
